FAERS Safety Report 17279897 (Version 2)
Quarter: 2020Q1

REPORT INFORMATION
  Report Type: Report from Study
  Country: None (occurrence: BE)
  Receive Date: 20200116
  Receipt Date: 20200130
  Transmission Date: 20200409
  Serious: Yes (Death, Hospitalization)
  Sender: FDA-Public Use
  Company Number: BE-ABBVIE-20K-013-3233352-00

PATIENT
  Sex: Female
  Weight: 51 kg

DRUGS (4)
  1. DUODOPA [Suspect]
     Active Substance: CARBIDOPA\LEVODOPA
     Dosage: MD=3ML, CD=3.9ML/HR DURING 16HRS, ED=2ML, ND=3ML/HR DURING 8HRS
     Route: 050
     Dates: start: 20191028
  2. DUODOPA [Suspect]
     Active Substance: CARBIDOPA\LEVODOPA
     Dosage: MD=0ML, CD=4ML/HR AM AND 4.4ML/HR PM DURING 16HRS, ED=3ML, ND=2.5ML/HR DURING 8HRS
     Route: 050
     Dates: start: 20081024, end: 20100316
  3. DUODOPA [Suspect]
     Active Substance: CARBIDOPA\LEVODOPA
     Dosage: DOSES CONTINUOUSLY MONITORED AND ADAPTED
     Route: 050
     Dates: start: 20100316, end: 20191028
  4. DUODOPA [Suspect]
     Active Substance: CARBIDOPA\LEVODOPA
     Indication: PARKINSON^S DISEASE
     Dosage: UNKNOWN DOSAGES
     Route: 050
     Dates: start: 20081020, end: 20081024

REACTIONS (2)
  - Embolism [Unknown]
  - Death [Fatal]

NARRATIVE: CASE EVENT DATE: 202001
